FAERS Safety Report 17425859 (Version 1)
Quarter: 2020Q1

REPORT INFORMATION
  Report Type: Spontaneous
  Country: FR (occurrence: FR)
  Receive Date: 20200217
  Receipt Date: 20200217
  Transmission Date: 20200409
  Serious: Yes (Other)
  Sender: FDA-Public Use
  Company Number: FR-MYLANLABS-2020M1015810

PATIENT
  Age: 33 Year
  Sex: Female
  Weight: 97 kg

DRUGS (1)
  1. METHOTREXATE MYLAN 50 MG/2 ML, SOLUTION FOR INJECTION [Suspect]
     Active Substance: METHOTREXATE SODIUM
     Indication: ECTOPIC PREGNANCY
     Dosage: 100 MILLIGRAM(QD)  TOTAL
     Route: 042
     Dates: start: 20191009, end: 20191009

REACTIONS (2)
  - Maternal exposure during pregnancy [Recovered/Resolved]
  - Abortion spontaneous [Recovered/Resolved]

NARRATIVE: CASE EVENT DATE: 20191107
